FAERS Safety Report 10304560 (Version 1)
Quarter: 2014Q3

REPORT INFORMATION
  Report Type: Spontaneous
  Country: US (occurrence: US)
  Receive Date: 20140715
  Receipt Date: 20140715
  Transmission Date: 20150326
  Serious: No
  Sender: FDA-Public Use
  Company Number: US-BIOGENIDEC-2014BI068303

PATIENT
  Sex: Female

DRUGS (1)
  1. TYSABRI [Suspect]
     Active Substance: NATALIZUMAB
     Indication: MULTIPLE SCLEROSIS
     Route: 042

REACTIONS (7)
  - Weight decreased [Unknown]
  - General symptom [Unknown]
  - Memory impairment [Unknown]
  - Arthralgia [Unknown]
  - White blood cell count increased [Unknown]
  - Thyroid disorder [Unknown]
  - Abdominal pain lower [Unknown]
